FAERS Safety Report 7937441-1 (Version None)
Quarter: 2011Q4

REPORT INFORMATION
  Report Type: 
  Country: None (occurrence: None)
  Receive Date: 20111123
  Receipt Date: 20111117
  Transmission Date: 20120403
  Serious: Yes (Hospitalization)
  Sender: FDA-Public Use
  Company Number: DE-JNJFOC-20090701249

PATIENT
  Sex: Female
  Weight: 46 kg

DRUGS (18)
  1. REMICADE [Suspect]
     Route: 042
     Dates: start: 20090609
  2. PREDNISOLONE [Concomitant]
     Indication: COLITIS ULCERATIVE
     Route: 048
     Dates: start: 20090421
  3. PLACEBO [Suspect]
     Route: 058
     Dates: start: 20081027
  4. PLACEBO [Suspect]
     Route: 058
     Dates: start: 20090313
  5. METRONIDAZOLE [Concomitant]
     Indication: COLITIS ULCERATIVE
     Route: 048
     Dates: start: 20090509, end: 20090529
  6. PLACEBO [Suspect]
     Route: 058
     Dates: start: 20080910
  7. MESALAMINE [Concomitant]
     Indication: COLITIS ULCERATIVE
     Route: 048
     Dates: start: 20080325
  8. VALETTE [Concomitant]
     Route: 048
  9. CIPROFLOXACIN [Concomitant]
     Indication: COLITIS ULCERATIVE
     Route: 048
     Dates: start: 20090509, end: 20090529
  10. PLACEBO [Suspect]
     Route: 058
     Dates: start: 20090414
  11. PURINETHOL [Concomitant]
     Dates: start: 20090625
  12. HUMIRA [Concomitant]
     Route: 058
     Dates: start: 20090622, end: 20090622
  13. PLACEBO [Suspect]
     Route: 058
     Dates: start: 20090216
  14. PLACEBO [Suspect]
     Route: 058
     Dates: start: 20081121
  15. PLACEBO [Suspect]
     Route: 058
     Dates: start: 20090116
  16. PLACEBO [Suspect]
     Route: 058
     Dates: start: 20090508
  17. PLACEBO [Suspect]
     Indication: COLITIS ULCERATIVE
     Route: 058
     Dates: start: 20081219
  18. REMICADE [Suspect]
     Indication: COLITIS ULCERATIVE
     Route: 042
     Dates: start: 20090527

REACTIONS (1)
  - COLITIS ULCERATIVE [None]
